FAERS Safety Report 15383088 (Version 2)
Quarter: 2019Q3

REPORT INFORMATION
  Report Type: Spontaneous
  Country: US (occurrence: US)
  Receive Date: 20180913
  Receipt Date: 20190912
  Transmission Date: 20191004
  Serious: No
  Sender: FDA-Public Use
  Company Number: US-ASTELLAS-2017US040064

PATIENT
  Sex: Male

DRUGS (1)
  1. XTANDI [Suspect]
     Active Substance: ENZALUTAMIDE
     Indication: PROSTATE CANCER
     Route: 048
     Dates: start: 20170425

REACTIONS (7)
  - Constipation [Unknown]
  - Asthenia [Unknown]
  - Joint swelling [Unknown]
  - Treatment failure [Unknown]
  - Diarrhoea [Unknown]
  - Peripheral swelling [Unknown]
  - Headache [Unknown]
